FAERS Safety Report 9391751 (Version 1)
Quarter: 2013Q3

REPORT INFORMATION
  Report Type: Spontaneous
  Country: US (occurrence: US)
  Receive Date: 20130709
  Receipt Date: 20130709
  Transmission Date: 20140515
  Serious: Yes (Death, Other)
  Sender: FDA-Public Use
  Company Number: US-BRISTOL-MYERS SQUIBB COMPANY-19059666

PATIENT
  Age: 7 Decade
  Sex: Female

DRUGS (2)
  1. YERVOY [Suspect]
     Indication: METASTATIC MALIGNANT MELANOMA
  2. VEMURAFENIB [Suspect]

REACTIONS (4)
  - Death [Fatal]
  - Decubitus ulcer [Unknown]
  - Mobility decreased [Unknown]
  - Diarrhoea [Not Recovered/Not Resolved]
